FAERS Safety Report 7108539-5 (Version None)
Quarter: 2010Q4

REPORT INFORMATION
  Report Type: 
  Country: None (occurrence: None)
  Receive Date: 20101112
  Receipt Date: 20101109
  Transmission Date: 20110411
  Serious: Yes (Hospitalization)
  Sender: FDA-Public Use
  Company Number: 2010SP041901

PATIENT
  Age: 92 Year
  Sex: Male

DRUGS (2)
  1. DESLORATADINE [Suspect]
     Indication: PRODUCT USED FOR UNKNOWN INDICATION
     Dosage: ;PO
     Route: 048
     Dates: start: 20071001
  2. XATRAL (ALFUZOSIN) [Suspect]
     Indication: PRODUCT USED FOR UNKNOWN INDICATION
     Dosage: 2.5 MG; ;PO
     Route: 048
     Dates: start: 20080301

REACTIONS (4)
  - CONDITION AGGRAVATED [None]
  - LICHENOID KERATOSIS [None]
  - PRURIGO [None]
  - TOXIC SKIN ERUPTION [None]
